FAERS Safety Report 5293588-2 (Version None)
Quarter: 2007Q2

REPORT INFORMATION
  Report Type: 
  Country: None (occurrence: None)
  Receive Date: 20070405
  Receipt Date: 20070322
  Transmission Date: 20071010
  Serious: Yes (Hospitalization)
  Sender: FDA-Public Use
  Company Number: FR-1162328

PATIENT
  Age: 71 Year
  Sex: Female

DRUGS (12)
  1. TOBRADEX [Suspect]
     Dosage: EYE DROPS; NI; OPHTHALMIC
     Route: 047
  2. LEXOMIL (BROMAZEPAM [Concomitant]
  3. CITALOPRAM HYDROBROMIDE [Concomitant]
  4. ENBREL [Concomitant]
  5. COSOPT (COSOPT) [Concomitant]
  6. BISOPROLOL FUMARATE [Concomitant]
  7. ATARAX [Concomitant]
  8. PREDNISONE [Concomitant]
  9. FOSAMAX [Concomitant]
  10. AMLODIPINE BESYLATE [Concomitant]
  11. LEVOTHYROXINE SODIUM [Concomitant]
  12. POTASSIUM CHLORIDE [Concomitant]

REACTIONS (2)
  - GRANULOCYTOPENIA [None]
  - THROMBOCYTOPENIA [None]
